FAERS Safety Report 5487365-7 (Version None)
Quarter: 2007Q4

REPORT INFORMATION
  Report Type: 
  Country: None (occurrence: None)
  Receive Date: 20071015
  Receipt Date: 20070918
  Transmission Date: 20080405
  Serious: Yes (Life-Threatening, Other)
  Sender: FDA-Public Use
  Company Number: 2007US002491

PATIENT
  Age: 48 Year
  Sex: Female

DRUGS (10)
  1. AMBISOME [Suspect]
     Indication: TRICHOSPORON INFECTION
     Dosage: 95 MG, UID/QD,IV DRIP
     Route: 041
     Dates: start: 20070708, end: 20070720
  2. VFEND [Concomitant]
  3. NEO-MINOPHAGEN C (GLYCYRRHIZIC ACID, AMMONIUM SALT) [Concomitant]
  4. DENOSINE (GANCICLOVIR) [Concomitant]
  5. MEROPEN (MEROPENEM) [Concomitant]
  6. PLATELETS [Concomitant]
  7. NORVASC [Concomitant]
  8. RABEPRAZOLE SODIUM [Concomitant]
  9. HORMONES NOS [Concomitant]
  10. CEFTAZIDIME [Concomitant]

REACTIONS (6)
  - ALANINE AMINOTRANSFERASE INCREASED [None]
  - ASPARTATE AMINOTRANSFERASE INCREASED [None]
  - BLOOD BILIRUBIN INCREASED [None]
  - BLOOD POTASSIUM INCREASED [None]
  - PANCYTOPENIA [None]
  - RENAL IMPAIRMENT [None]
